FAERS Safety Report 7343795-X (Version None)
Quarter: 2011Q1

REPORT INFORMATION
  Report Type: 
  Country: None (occurrence: None)
  Receive Date: 20110308
  Receipt Date: 20110308
  Transmission Date: 20110831
  Serious: Yes (Life-Threatening, Hospitalization)
  Sender: FDA-Public Use
  Company Number: None

PATIENT
  Age: 33 Year
  Sex: Female
  Weight: 53.5244 kg

DRUGS (2)
  1. BACTRIM [Suspect]
     Indication: SINUSITIS
     Dosage: TWICE DAILY 2 WEEKS
     Dates: start: 20040418, end: 20040501
  2. ROCEPHIN [Suspect]
     Dosage: SHOTS
     Dates: start: 20040502, end: 20040504

REACTIONS (7)
  - DEAFNESS [None]
  - CARDIAC DISORDER [None]
  - STEVENS-JOHNSON SYNDROME [None]
  - VISION BLURRED [None]
  - HEADACHE [None]
  - TOXIC EPIDERMAL NECROLYSIS [None]
  - MUSCULAR WEAKNESS [None]
